FAERS Safety Report 7927542-6 (Version None)
Quarter: 2011Q4

REPORT INFORMATION
  Report Type: 
  Country: None (occurrence: None)
  Receive Date: 20111118
  Receipt Date: 20111107
  Transmission Date: 20120403
  Serious: Yes (Hospitalization)
  Sender: FDA-Public Use
  Company Number: US-BAYER-2011-052514

PATIENT
  Age: 37 Year
  Sex: Female
  Weight: 61.678 kg

DRUGS (9)
  1. FLUTICASONE PROPIONATE [Concomitant]
  2. PROMETHAZINE [Concomitant]
  3. RITALIN [Concomitant]
  4. OXYCODONE HCL [Concomitant]
  5. YAZ [Suspect]
     Indication: PREMENSTRUAL SYNDROME
     Dosage: UNK
     Dates: start: 20080701, end: 20100101
  6. HYDROCODONE BITARTRATE AND ACETAMINOPHEN [Concomitant]
  7. TRAZODONE HCL [Concomitant]
  8. AMOXICILLIN [Concomitant]
  9. LEVAQUIN [Concomitant]

REACTIONS (5)
  - CHOLECYSTITIS CHRONIC [None]
  - INJURY [None]
  - CHOLELITHIASIS [None]
  - GALLBLADDER DISORDER [None]
  - PAIN [None]
